FAERS Safety Report 14546969 (Version 1)
Quarter: 2018Q1

REPORT INFORMATION
  Report Type: Spontaneous
  Country: US (occurrence: US)
  Receive Date: 20180219
  Receipt Date: 20180219
  Transmission Date: 20180509
  Serious: No
  Sender: FDA-Public Use
  Company Number: US-PFIZER INC-2018068523

PATIENT
  Age: 71 Year
  Sex: Male
  Weight: 80.73 kg

DRUGS (1)
  1. NICOTROL [Suspect]
     Active Substance: NICOTINE
     Indication: SMOKING CESSATION THERAPY
     Dosage: ONE INHALER 5 TO 6 CAPSULES PER DAY

REACTIONS (2)
  - Product formulation issue [Unknown]
  - Drug ineffective [Unknown]
